FAERS Safety Report 17928962 (Version 2)
Quarter: 2021Q2

REPORT INFORMATION
  Report Type: Spontaneous
  Country: CA (occurrence: CA)
  Receive Date: 20200623
  Receipt Date: 20210628
  Transmission Date: 20210717
  Serious: Yes (Hospitalization)
  Sender: FDA-Public Use
  Company Number: CA-TEVA-2020-CA-1792004

PATIENT
  Age: 31 Year
  Sex: Male
  Weight: 95.34 kg

DRUGS (4)
  1. AMOXICILLIN. [Suspect]
     Active Substance: AMOXICILLIN
     Indication: ANTIBIOTIC PROPHYLAXIS
     Dosage: 1500 MILLIGRAM DAILY;
     Route: 048
  2. BENADRYL [Concomitant]
     Active Substance: DIPHENHYDRAMINE HYDROCHLORIDE
  3. VICKS NYQUIL [Concomitant]
     Active Substance: ACETAMINOPHEN\DEXTROMETHORPHAN HYDROBROMIDE\DOXYLAMINE SUCCINATE
  4. TYLENOL [Concomitant]
     Active Substance: ACETAMINOPHEN

REACTIONS (11)
  - Pruritus [Unknown]
  - Rash [Unknown]
  - Sinus disorder [Unknown]
  - Dysphagia [Unknown]
  - Ocular hyperaemia [Unknown]
  - Asthenia [Unknown]
  - Fatigue [Unknown]
  - Hyperhidrosis [Unknown]
  - Eye discharge [Unknown]
  - Eyelid margin crusting [Unknown]
  - Pyrexia [Unknown]
